FAERS Safety Report 8380916-4 (Version None)
Quarter: 2012Q2

REPORT INFORMATION
  Report Type: 
  Country: None (occurrence: None)
  Receive Date: 20120523
  Receipt Date: 20120516
  Transmission Date: 20120825
  Serious: Yes (Hospitalization, Other)
  Sender: FDA-Public Use
  Company Number: CZ-PFIZER INC-2012103545

PATIENT
  Age: 42 Year
  Sex: Female

DRUGS (8)
  1. DOCETAXEL [Suspect]
     Indication: BREAST CANCER
     Dosage: 100 MG/M2, EVERY 3 WEEKS
     Route: 042
  2. PACLITAXEL [Suspect]
     Indication: BREAST CANCER
     Dosage: 80 MG/M2, CYCLIC, 12 TIMES WEEKLY
     Route: 042
  3. RANITIDINE [Suspect]
     Indication: PREMEDICATION
     Dosage: 150 MG, UNK
     Route: 042
  4. DEXAMETHASONE [Suspect]
     Indication: PREMEDICATION
     Dosage: 12 MG, UNK
     Route: 042
  5. CYCLOPHOSPHAMIDE [Suspect]
     Indication: BREAST CANCER
     Dosage: 600 MG/M2, CYCLIC, DAY 1, GIVEN EVERY 3
     Route: 042
  6. BISULEPIN [Suspect]
     Indication: PREMEDICATION
     Dosage: 2 MG, UNK
     Route: 042
  7. ONDANSETRON [Suspect]
     Indication: PREMEDICATION
     Dosage: 8 MG, UNK
     Route: 042
  8. DOXORUBICIN HCL [Suspect]
     Indication: BREAST CANCER
     Dosage: 60 MG/M2, CYCLIC, DAY 1, GIVEN EVERY 3
     Route: 042

REACTIONS (3)
  - FEBRILE NEUTROPENIA [None]
  - SUICIDAL IDEATION [None]
  - HALLUCINATION [None]
